FAERS Safety Report 7770205-0 (Version None)
Quarter: 2011Q3

REPORT INFORMATION
  Report Type: 
  Country: None (occurrence: None)
  Receive Date: 20110922
  Receipt Date: 20110613
  Transmission Date: 20111222
  Serious: No
  Sender: FDA-Public Use
  Company Number: US-ASTRAZENECA-2011SE36235

PATIENT
  Age: 45 Year
  Sex: Female

DRUGS (2)
  1. SEROQUEL [Suspect]
     Indication: SOMNOLENCE
     Route: 048
  2. SEROQUEL [Suspect]
     Route: 048

REACTIONS (6)
  - HOSPITALISATION [None]
  - ABDOMINAL DISCOMFORT [None]
  - HEADACHE [None]
  - DRUG DOSE OMISSION [None]
  - OFF LABEL USE [None]
  - COLD SWEAT [None]
